FAERS Safety Report 10489927 (Version 1)
Quarter: 2014Q3

REPORT INFORMATION
  Report Type: Spontaneous
  Country: US (occurrence: None)
  Receive Date: 20140815
  Receipt Date: 20140815
  Transmission Date: 20150326
  Serious: Yes (Life-Threatening, Hospitalization, Other)
  Sender: FDA-Public Use
  Company Number: ADR-2013-01204

PATIENT
  Age: 13 Year
  Sex: Female

DRUGS (1)
  1. BACLOFEN. [Suspect]
     Active Substance: BACLOFEN
     Indication: MUSCLE SPASTICITY
     Dosage: 700 MCG/DAY

REACTIONS (6)
  - Hyperhidrosis [None]
  - Pyrexia [None]
  - Mental status changes [None]
  - Muscle spasticity [None]
  - Incorrect route of drug administration [None]
  - Drug withdrawal syndrome [None]

NARRATIVE: CASE EVENT DATE: 20130712
